APPROVED DRUG PRODUCT: OXYCODONE AND ASPIRIN
Active Ingredient: ASPIRIN; OXYCODONE HYDROCHLORIDE; OXYCODONE TEREPHTHALATE
Strength: 325MG;4.5MG;0.38MG
Dosage Form/Route: TABLET;ORAL
Application: A040260 | Product #001
Applicant: SUN PHARMACEUTICAL INDUSTRIES INC
Approved: Jul 17, 1998 | RLD: No | RS: No | Type: DISCN